FAERS Safety Report 7036163-1 (Version None)
Quarter: 2010Q4

REPORT INFORMATION
  Report Type: 
  Country: None (occurrence: None)
  Receive Date: 20101008
  Receipt Date: 20100601
  Transmission Date: 20110411
  Serious: No
  Sender: FDA-Public Use
  Company Number: US-BRISTOL-MYERS SQUIBB COMPANY-15086911

PATIENT
  Age: 67 Year
  Sex: Male
  Weight: 103 kg

DRUGS (7)
  1. AVAPRO [Suspect]
     Indication: HYPERTENSION
  2. AVALIDE [Suspect]
     Indication: HYPERTENSION
  3. HYDRALAZINE HCL [Concomitant]
  4. LORAZEPAM [Concomitant]
  5. RANITIDINE [Concomitant]
  6. METFORMIN [Concomitant]
  7. MECLIZINE [Concomitant]

REACTIONS (2)
  - DRUG INEFFECTIVE [None]
  - HEART RATE INCREASED [None]
